FAERS Safety Report 6842204-4 (Version None)
Quarter: 2010Q3

REPORT INFORMATION
  Report Type: 
  Country: None (occurrence: None)
  Receive Date: 20100714
  Receipt Date: 20070723
  Transmission Date: 20110219
  Serious: No
  Sender: FDA-Public Use
  Company Number: US-PFIZER INC-2007062291

PATIENT
  Sex: Female
  Weight: 88.636 kg

DRUGS (13)
  1. CHANTIX [Suspect]
     Indication: SMOKING CESSATION THERAPY
     Dates: start: 20070501
  2. LASIX [Concomitant]
  3. LANOXIN [Concomitant]
  4. XANAX [Concomitant]
  5. PAXIL [Concomitant]
  6. PLAVIX [Concomitant]
  7. AVANDIA [Concomitant]
  8. POTASSIUM CHLORIDE [Concomitant]
  9. PENTOXIFYLLINE [Concomitant]
  10. ACETYLSALICYLIC ACID [Concomitant]
  11. GLYCERYL TRINITRATE [Concomitant]
  12. VITACAL [Concomitant]
  13. MAGNESIUM [Concomitant]

REACTIONS (6)
  - ABDOMINAL DISCOMFORT [None]
  - ARTHRALGIA [None]
  - BACK PAIN [None]
  - CONSTIPATION [None]
  - MYALGIA [None]
  - SOMNOLENCE [None]
